FAERS Safety Report 6195344-X (Version None)
Quarter: 2009Q2

REPORT INFORMATION
  Report Type: 
  Country: None (occurrence: None)
  Receive Date: 20090519
  Receipt Date: 20090518
  Transmission Date: 20091009
  Serious: Yes (Death)
  Sender: FDA-Public Use
  Company Number: IT-BRISTOL-MYERS SQUIBB COMPANY-14621197

PATIENT
  Age: 8 Decade
  Sex: Male

DRUGS (2)
  1. ABILIFY [Suspect]
     Indication: AGITATION
     Dosage: 4 DOSAGEFORM = 4 VIALS
  2. CHLORPROMAZINE [Suspect]

REACTIONS (1)
  - CARDIAC ARREST [None]
